FAERS Safety Report 7232624-0 (Version None)
Quarter: 2011Q1

REPORT INFORMATION
  Report Type: 
  Country: None (occurrence: None)
  Receive Date: 20110106
  Receipt Date: 20101221
  Transmission Date: 20110831
  Serious: No
  Sender: FDA-Public Use
  Company Number: 2010-01057

PATIENT
  Sex: Female

DRUGS (1)
  1. ZICAM NASAL PRODUCTS [Suspect]
     Dates: start: 20040101, end: 20060101

REACTIONS (2)
  - ANOSMIA [None]
  - AGEUSIA [None]
